FAERS Safety Report 7786797-1 (Version None)
Quarter: 2011Q3

REPORT INFORMATION
  Report Type: 
  Country: None (occurrence: None)
  Receive Date: 20110929
  Receipt Date: 20110919
  Transmission Date: 20111222
  Serious: No
  Sender: FDA-Public Use
  Company Number: US-B.I. PHARMACEUTICALS,INC./RIDGEFIELD-2011-BP-22508BP

PATIENT
  Sex: Male

DRUGS (13)
  1. DIGOXIN [Concomitant]
     Dosage: 0.25 MG
     Route: 048
  2. PRADAXA [Suspect]
     Indication: ATRIAL FIBRILLATION
     Dosage: 300 MG
     Route: 048
     Dates: start: 20110901
  3. DILTIAZEM HCL [Concomitant]
     Dosage: 240 ML
     Route: 048
  4. VYTORIN [Concomitant]
     Indication: BLOOD CHOLESTEROL INCREASED
     Route: 048
  5. OMEPRAZOLE [Concomitant]
     Dosage: 20 MG
     Route: 048
  6. ALLOPURINOL [Concomitant]
     Dosage: 300 MG
     Route: 048
  7. METFORMIN HCL [Concomitant]
     Indication: DIABETES MELLITUS
     Dosage: 1000 MG
     Route: 048
  8. PLAVIX [Concomitant]
     Indication: CORONARY ARTERY DISEASE
     Dosage: 75 MG
     Route: 048
     Dates: start: 20110501
  9. SPIRIVA [Suspect]
     Indication: CHRONIC OBSTRUCTIVE PULMONARY DISEASE
     Dosage: 18 MCG
     Route: 055
     Dates: start: 20110901
  10. ALBUTEROL [Concomitant]
     Dosage: 10 MG
     Route: 055
  11. FUROSEMIDE [Concomitant]
     Route: 048
  12. COMBIVENT [Concomitant]
     Route: 055
  13. DIOVAN [Concomitant]
     Route: 048

REACTIONS (1)
  - DYSGEUSIA [None]
